FAERS Safety Report 10073675 (Version 1)
Quarter: 2014Q2

REPORT INFORMATION
  Report Type: Spontaneous
  Country: BG (occurrence: BG)
  Receive Date: 20140411
  Receipt Date: 20140411
  Transmission Date: 20141212
  Serious: Yes (Other)
  Sender: FDA-Public Use
  Company Number: BG-ACTAVIS-2014-06983

PATIENT
  Sex: Female
  Weight: 79 kg

DRUGS (4)
  1. SPIRONOLACTONE [Suspect]
     Indication: CARDIAC FAILURE
     Dosage: 25 MG, DAILY
     Route: 048
     Dates: start: 201401, end: 201403
  2. SPIRONOLACTONE [Suspect]
     Indication: OEDEMA
  3. TRIFAS                             /01036501/ [Concomitant]
     Indication: PRODUCT USED FOR UNKNOWN INDICATION
     Dosage: 200 MG, 1/2 TABLET EVERY 3 DAYS
     Route: 065
  4. PRADAXA [Concomitant]
     Indication: THROMBOSIS PROPHYLAXIS
     Dosage: 110 MG, UNK
     Route: 065

REACTIONS (8)
  - Dementia [Recovered/Resolved]
  - Muscle spasms [Recovered/Resolved]
  - Localised oedema [Recovered/Resolved]
  - Pain [Recovered/Resolved]
  - Skin disorder [Recovered/Resolved]
  - Blister [Recovered/Resolved]
  - Chromaturia [Recovered/Resolved]
  - Tooth discolouration [Recovered/Resolved]
